FAERS Safety Report 15132833 (Version 4)
Quarter: 2018Q4

REPORT INFORMATION
  Report Type: Report from Study
  Country: DE (occurrence: DE)
  Receive Date: 20180712
  Receipt Date: 20181122
  Transmission Date: 20190204
  Serious: Yes (Hospitalization)
  Sender: FDA-Public Use
  Company Number: DE-TEVA-2018-DE-922824

PATIENT
  Age: 48 Year
  Sex: Female
  Weight: 42 kg

DRUGS (29)
  1. NOVAMINSULFON [Concomitant]
     Active Substance: METAMIZOLE
     Indication: TUMOUR PAIN
     Dosage: 30 GTT DAILY; 120 DROPS
     Route: 048
     Dates: start: 2017
  2. AMOCLAV [Concomitant]
     Active Substance: AMOXICILLIN\CLAVULANATE POTASSIUM
     Indication: PRODUCT USED FOR UNKNOWN INDICATION
     Dosage: .5 DOSAGE FORMS
     Route: 048
     Dates: start: 20180228, end: 20180304
  3. ABRAXANE [Suspect]
     Active Substance: PACLITAXEL
     Indication: NON-SMALL CELL LUNG CANCER
     Dosage: 100 MG/M2 DAILY; 100 MILLIGRAM/SQ. METER
     Route: 041
     Dates: start: 20180112, end: 20180119
  4. MSI [Concomitant]
     Active Substance: MORPHINE SULFATE
     Indication: TUMOUR PAIN
     Route: 058
     Dates: start: 20180213, end: 20180215
  5. DEXAMETHASONE. [Concomitant]
     Active Substance: DEXAMETHASONE
     Indication: PROPHYLAXIS
     Route: 041
     Dates: start: 20171208, end: 20180105
  6. AMPHO MORONAL [Concomitant]
     Active Substance: AMPHOTERICIN B
     Indication: STOMATITIS
     Dosage: 1 ML DAILY; 4 MILLILITER
     Route: 061
     Dates: start: 20180212
  7. ONDANSETRON [Concomitant]
     Active Substance: ONDANSETRON
     Indication: PROPHYLAXIS
     Route: 041
     Dates: start: 20171208, end: 20180105
  8. PANTOZOL [Concomitant]
     Active Substance: PANTOPRAZOLE SODIUM
     Indication: PROPHYLAXIS
     Dosage: 40 MILLIGRAM DAILY; 40 MILLIGRAM
     Route: 048
     Dates: start: 201111
  9. NYSTADERM [Concomitant]
     Indication: PROPHYLAXIS
     Dosage: 1 APPLICATION
     Route: 048
     Dates: start: 201711, end: 20171214
  10. VITADRAL OEL [Concomitant]
     Indication: PROPHYLAXIS
     Dosage: 5 GTT DAILY; 25 DROPS
     Route: 048
     Dates: start: 201711, end: 20171210
  11. BRIMICA/GENUAIR [Concomitant]
     Indication: CHRONIC OBSTRUCTIVE PULMONARY DISEASE
     Dosage: 1 PUFF
     Route: 055
     Dates: start: 20171108
  12. ABRAXANE [Suspect]
     Active Substance: PACLITAXEL
     Dosage: 100 MG/M2 DAILY; 100 MILLIGRAM/SQ. METER
     Route: 041
     Dates: start: 20171215
  13. DEXAMETHASONE. [Concomitant]
     Active Substance: DEXAMETHASONE
     Dosage: 24 MILLIGRAM DAILY;
     Route: 048
     Dates: start: 20180202
  14. HUMANALBUMIN [Concomitant]
     Active Substance: ALBUMIN HUMAN
     Indication: CACHEXIA
     Route: 041
     Dates: start: 20180215, end: 20180219
  15. PANTHENOL [Concomitant]
     Active Substance: PANTHENOL
     Indication: PROPHYLAXIS
     Dosage: 1 TAB
     Route: 048
     Dates: start: 201711, end: 20171210
  16. ABRAXANE [Suspect]
     Active Substance: PACLITAXEL
     Dosage: 100 MG/M2 DAILY; 100 MILLIGRAM/SQ. METER
     Route: 041
     Dates: start: 20171208, end: 20180119
  17. ATROVENT [Concomitant]
     Active Substance: IPRATROPIUM BROMIDE
     Indication: CHRONIC OBSTRUCTIVE PULMONARY DISEASE
     Dosage: 1 DOSAGE FORMS DAILY; 500MICROG/2ML
     Route: 065
     Dates: start: 20180212, end: 20180228
  18. SALBUTAMOL [Concomitant]
     Active Substance: ALBUTEROL
     Indication: CHRONIC OBSTRUCTIVE PULMONARY DISEASE
     Dosage: 1 PUFF
     Route: 055
     Dates: start: 20171108
  19. L-THYROXIN [Concomitant]
     Active Substance: LEVOTHYROXINE SODIUM
     Dosage: 125 MICROGRAM DAILY; 125 MICROGRAM
     Route: 048
     Dates: start: 20171208, end: 20180212
  20. ABRAXANE [Suspect]
     Active Substance: PACLITAXEL
     Dosage: 100 MG/M2 DAILY; 100 MILLIGRAM/SQ. METER
     Route: 041
     Dates: start: 20180105
  21. L-THYROXIN [Concomitant]
     Active Substance: LEVOTHYROXINE SODIUM
     Dosage: 125 MICROGRAM DAILY; 125 MICROGRAM
     Route: 048
     Dates: start: 20180213, end: 20180228
  22. L-THYROXIN [Concomitant]
     Active Substance: LEVOTHYROXINE SODIUM
     Indication: THYROIDECTOMY
     Dosage: 100 MICROGRAM DAILY; 100 MICROGRAM
     Route: 048
     Dates: start: 20171108, end: 20171207
  23. DEXAMETHASONE. [Concomitant]
     Active Substance: DEXAMETHASONE
     Dosage: 24 MILLIGRAM DAILY; 24 MILLIGRAM
     Route: 048
     Dates: start: 20180202
  24. CARBOPLATIN. [Suspect]
     Active Substance: CARBOPLATIN
     Indication: NON-SMALL CELL LUNG CANCER
     Dosage: 4.8 MG X MIN/ML
     Route: 041
     Dates: start: 20171208, end: 20180105
  25. L-THYROXIN [Concomitant]
     Active Substance: LEVOTHYROXINE SODIUM
     Dosage: 125 MICROGRAM DAILY; 125 MICROGRAM
     Route: 048
     Dates: start: 20180301
  26. TAVOR (LORAZEPAM) [Concomitant]
     Active Substance: LORAZEPAM
     Indication: INSOMNIA
     Route: 048
     Dates: start: 20180214, end: 20180227
  27. FRESUBIN [Concomitant]
     Active Substance: AMINO ACIDS\DEXTROSE\ELECTROLYTES NOS\SOYBEAN OIL\VITAMINS
     Indication: CACHEXIA
     Dosage: 1 APPLICATION
     Route: 048
     Dates: start: 20171211
  28. VENTOLAIR [Concomitant]
     Active Substance: BECLOMETHASONE DIPROPIONATE
     Indication: PROPHYLAXIS
     Dosage: 1 PUFF
     Route: 055
     Dates: start: 201711, end: 20180210
  29. NATRIUM CHLORIDE [Concomitant]
     Active Substance: SODIUM CHLORIDE
     Indication: PROPHYLAXIS
     Route: 041
     Dates: start: 20171208, end: 20180105

REACTIONS (4)
  - Leukopenia [Recovered/Resolved]
  - Nausea [Not Recovered/Not Resolved]
  - Anaemia [Recovered/Resolved]
  - Pneumothorax [Recovered/Resolved]

NARRATIVE: CASE EVENT DATE: 20171209
